FAERS Safety Report 7503594-2 (Version None)
Quarter: 2011Q2

REPORT INFORMATION
  Report Type: 
  Country: None (occurrence: None)
  Receive Date: 20110524
  Receipt Date: 20110524
  Transmission Date: 20111010
  Serious: Yes (Other)
  Sender: FDA-Public Use
  Company Number: None

PATIENT
  Age: 34 Year
  Sex: Female
  Weight: 87.2 kg

DRUGS (1)
  1. CIPROFLOXACIN [Suspect]
     Indication: GASTROINTESTINAL INFLAMMATION
     Dosage: 400 MG Q 12 HOURS IV BOLUS
     Route: 040
     Dates: start: 20110522, end: 20110523

REACTIONS (3)
  - INFUSION SITE RASH [None]
  - DRUG HYPERSENSITIVITY [None]
  - URTICARIA [None]
